FAERS Safety Report 17975749 (Version 1)
Quarter: 2020Q3

REPORT INFORMATION
  Report Type: Spontaneous
  Country: MX (occurrence: MX)
  Receive Date: 20200702
  Receipt Date: 20200702
  Transmission Date: 20201103
  Serious: Yes (Hospitalization)
  Sender: FDA-Public Use
  Company Number: MX-BAYER-2020-133110

PATIENT
  Age: 79 Year

DRUGS (2)
  1. ULTRAVIST [Suspect]
     Active Substance: IOPROMIDE
     Indication: COMPUTERISED TOMOGRAM ABDOMEN
     Dosage: 115 ML, ONCE
     Dates: start: 20200626, end: 20200626
  2. ULTRAVIST [Suspect]
     Active Substance: IOPROMIDE
     Indication: ANGIOGRAM PERIPHERAL

REACTIONS (5)
  - Tachycardia [None]
  - Hypotension [None]
  - Pyrexia [None]
  - Chills [None]
  - Tachypnoea [None]

NARRATIVE: CASE EVENT DATE: 202006
